FAERS Safety Report 13749424 (Version 1)
Quarter: 2017Q3

REPORT INFORMATION
  Report Type: Report from Study
  Country: AU (occurrence: AU)
  Receive Date: 20170713
  Receipt Date: 20170713
  Transmission Date: 20171127
  Serious: Yes (Death, Hospitalization)
  Sender: FDA-Public Use
  Company Number: AU-ROCHE-1960218

PATIENT
  Age: 92 Year
  Sex: Female

DRUGS (3)
  1. TRASTUZUMAB. [Suspect]
     Active Substance: TRASTUZUMAB
     Indication: BREAST CANCER
     Dosage: LAST DOSE PRIOR TO ONSET OF EVENT ON 30/MAR/2017.
     Route: 042
     Dates: start: 20170330
  2. PACLITAXEL. [Suspect]
     Active Substance: PACLITAXEL
     Indication: BREAST CANCER
     Dosage: LAST DOSE PRIOR TO ONSET OF EVENT ON 30/MAR/2017.
     Route: 042
     Dates: start: 20170330
  3. PERTUZUMAB. [Suspect]
     Active Substance: PERTUZUMAB
     Indication: BREAST CANCER
     Dosage: LAST DOSE PRIOR TO ONSET OF EVENT ON 30/MAR/2017.
     Route: 042
     Dates: start: 20170330

REACTIONS (4)
  - Pneumonia [Fatal]
  - Stomatitis [Recovered/Resolved]
  - Diarrhoea [Recovered/Resolved]
  - Ill-defined disorder [Fatal]

NARRATIVE: CASE EVENT DATE: 20170422
